FAERS Safety Report 9775556 (Version 1)
Quarter: 2013Q4

REPORT INFORMATION
  Report Type: Spontaneous
  Country: US (occurrence: None)
  Receive Date: 20131218
  Receipt Date: 20131218
  Transmission Date: 20140711
  Serious: Yes (Other)
  Sender: FDA-Public Use
  Company Number: PR-AE13-001590

PATIENT
  Age: 32 Year
  Sex: Female

DRUGS (1)
  1. BC POWDER (ASPIRIN 845 MG/CAFFEINE 65 MG) [Suspect]
     Indication: ANALGESIC THERAPY
     Dosage: 12-15 POWDERS/DAY, ORAL
     Route: 048

REACTIONS (3)
  - Dependence [None]
  - Overdose [None]
  - Dyspnoea [None]
